FAERS Safety Report 4963719-X (Version None)
Quarter: 2006Q1

REPORT INFORMATION
  Report Type: 
  Country: None (occurrence: None)
  Receive Date: 20060330
  Receipt Date: 20060314
  Transmission Date: 20060701
  Serious: Yes (Life-Threatening)
  Sender: FDA-Public Use
  Company Number: JP200603004467

PATIENT
  Sex: Male

DRUGS (1)
  1. HUMULIN 70/30 [Suspect]
     Indication: DIABETES MELLITUS NON-INSULIN-DEPENDENT
     Dosage: 30 U, DAILY (1/D), SUBCUTANEOUS
     Route: 058
     Dates: end: 20040901

REACTIONS (2)
  - EOSINOPHIL COUNT INCREASED [None]
  - LYMPHOCYTE STIMULATION TEST POSITIVE [None]
